FAERS Safety Report 17071924 (Version 1)
Quarter: 2019Q4

REPORT INFORMATION
  Report Type: Spontaneous
  Country: US (occurrence: US)
  Receive Date: 20191125
  Receipt Date: 20191125
  Transmission Date: 20200122
  Serious: Yes (Hospitalization)
  Sender: FDA-Public Use
  Company Number: US-RADIUS HEALTH INC.-2019US004401

PATIENT
  Sex: Female

DRUGS (3)
  1. TYMLOS [Suspect]
     Active Substance: ABALOPARATIDE
     Indication: OSTEOPOROSIS POSTMENOPAUSAL
     Dosage: 80 MCG, QD
     Dates: end: 201911
  2. TYMLOS [Suspect]
     Active Substance: ABALOPARATIDE
     Indication: PELVIC FRACTURE
  3. TYMLOS [Suspect]
     Active Substance: ABALOPARATIDE
     Indication: FOOT FRACTURE

REACTIONS (6)
  - Syncope [Unknown]
  - Asthenia [Unknown]
  - Pneumonia [Recovered/Resolved]
  - Somnolence [Unknown]
  - Kidney infection [Recovered/Resolved]
  - Decreased appetite [Unknown]
